FAERS Safety Report 9352722 (Version 1)
Quarter: 2013Q2

REPORT INFORMATION
  Report Type: Spontaneous
  Country: US (occurrence: None)
  Receive Date: 20130614
  Receipt Date: 20130614
  Transmission Date: 20140414
  Serious: Yes (Death)
  Sender: FDA-Public Use
  Company Number: None

PATIENT
  Age: 73 Year
  Sex: Female

DRUGS (1)
  1. MYCOPHENOLATE [Suspect]
     Dosage: 250MG 1 CAP TWICE DAILY PO
     Route: 048
     Dates: start: 20100714, end: 20130314

REACTIONS (1)
  - Disease progression [None]
